FAERS Safety Report 16383028 (Version 1)
Quarter: 2019Q2

REPORT INFORMATION
  Report Type: Spontaneous
  Country: US (occurrence: US)
  Receive Date: 20190510
  Receipt Date: 20190510
  Transmission Date: 20190711
  Serious: Yes (Disabling)
  Sender: FDA-Public Use
  Company Number: None

PATIENT
  Age: 55 Year
  Sex: Female
  Weight: 67.5 kg

DRUGS (5)
  1. AIMOVIG [Suspect]
     Active Substance: ERENUMAB-AOOE
     Indication: MIGRAINE
     Dosage: ?          OTHER FREQUENCY:ONCE A MONTH;?
     Route: 058
  2. BIOTIN [Concomitant]
     Active Substance: BIOTIN
  3. TUMERIC [Concomitant]
     Active Substance: HERBALS\TURMERIC
  4. VITAMIN D [Concomitant]
     Active Substance: VITAMIN D NOS
  5. TALTZ [Concomitant]
     Active Substance: IXEKIZUMAB

REACTIONS (4)
  - Drug ineffective [None]
  - Toothache [None]
  - Arthralgia [None]
  - Pain in jaw [None]

NARRATIVE: CASE EVENT DATE: 20190401
